FAERS Safety Report 10586695 (Version 1)
Quarter: 2014Q4

REPORT INFORMATION
  Report Type: Spontaneous
  Country: US (occurrence: None)
  Receive Date: 20141114
  Receipt Date: 20141114
  Transmission Date: 20150529
  Serious: Yes (Hospitalization)
  Sender: FDA-Public Use
  Company Number: None

PATIENT
  Age: 60 Year
  Sex: Female
  Weight: 52.66 kg

DRUGS (16)
  1. SK-TETRAZINE [Concomitant]
  2. IBUPROFEN. [Concomitant]
     Active Substance: IBUPROFEN
  3. COMPAZINE [Concomitant]
     Active Substance: PROCHLORPERAZINE MALEATE
  4. TRASTUZUMAB [Suspect]
     Active Substance: TRASTUZUMAB
  5. POTASSIUM [Concomitant]
     Active Substance: POTASSIUM
  6. PERTUZUMAB [Suspect]
     Active Substance: PERTUZUMAB
     Indication: BREAST CANCER METASTATIC
     Dosage: IV INFUSION
     Route: 042
     Dates: start: 20140616, end: 20140902
  7. TRAMADOL [Concomitant]
     Active Substance: TRAMADOL
  8. PANTOPRAZOLE [Concomitant]
     Active Substance: PANTOPRAZOLE SODIUM
  9. EMLA [Concomitant]
     Active Substance: LIDOCAINE\PRILOCAINE
  10. FUROSEMIDE. [Concomitant]
     Active Substance: FUROSEMIDE
  11. LOMOTIL [Concomitant]
     Active Substance: ATROPINE SULFATE\DIPHENOXYLATE HYDROCHLORIDE
  12. TUMS EX [Concomitant]
     Active Substance: CALCIUM CARBONATE
  13. ONDANSETRON [Concomitant]
     Active Substance: ONDANSETRON
  14. DESITIN [Concomitant]
     Active Substance: ZINC OXIDE
  15. DOCETAXEL. [Suspect]
     Active Substance: DOCETAXEL
  16. NYSTATIN. [Concomitant]
     Active Substance: NYSTATIN

REACTIONS (3)
  - Skin reaction [None]
  - Fatigue [None]
  - Asthenia [None]

NARRATIVE: CASE EVENT DATE: 20140825
